FAERS Safety Report 16341742 (Version 1)
Quarter: 2019Q2

REPORT INFORMATION
  Report Type: Spontaneous
  Country: US (occurrence: US)
  Receive Date: 20190522
  Receipt Date: 20190522
  Transmission Date: 20190711
  Serious: Yes (Other)
  Sender: FDA-Public Use
  Company Number: PHEH2019US021395

PATIENT
  Sex: Female

DRUGS (10)
  1. AVASTIN [Suspect]
     Active Substance: BEVACIZUMAB
     Dosage: MAINTENANCE DOSE
     Route: 065
     Dates: start: 20151005, end: 201603
  2. TAXOL [Suspect]
     Active Substance: PACLITAXEL
     Dosage: 2 CYCLES
     Route: 065
     Dates: start: 20150610, end: 20150701
  3. CARBOPLATIN. [Suspect]
     Active Substance: CARBOPLATIN
     Dosage: 1 CYCLE
     Route: 065
     Dates: start: 20150518
  4. CISPLATIN. [Suspect]
     Active Substance: CISPLATIN
     Indication: OVARIAN EPITHELIAL CANCER
     Dosage: UNK
     Route: 065
     Dates: start: 20150610, end: 20150701
  5. CARBOPLATIN. [Suspect]
     Active Substance: CARBOPLATIN
     Indication: OVARIAN EPITHELIAL CANCER
     Dosage: 3 CYCLES
     Route: 065
     Dates: start: 20150216, end: 20150330
  6. AVASTIN [Suspect]
     Active Substance: BEVACIZUMAB
     Indication: OVARIAN EPITHELIAL CANCER
     Dosage: 3 CYCLES
     Route: 065
     Dates: start: 20150216, end: 20150330
  7. OPDIVO [Suspect]
     Active Substance: NIVOLUMAB
     Indication: OVARIAN EPITHELIAL CANCER
     Dosage: UNK
     Route: 065
     Dates: start: 201601, end: 20160316
  8. TAXOTERE [Suspect]
     Active Substance: DOCETAXEL
     Indication: OVARIAN EPITHELIAL CANCER
     Dosage: 3 CYCLES
     Route: 065
     Dates: start: 20150216, end: 20150330
  9. AVASTIN [Suspect]
     Active Substance: BEVACIZUMAB
     Dosage: 2 CYCLES
     Route: 065
     Dates: start: 20150610, end: 20150701
  10. TAXOL [Suspect]
     Active Substance: PACLITAXEL
     Indication: OVARIAN EPITHELIAL CANCER
     Dosage: UNK
     Route: 065
     Dates: start: 20150518

REACTIONS (3)
  - Thyroid disorder [Unknown]
  - Hepatic lesion [Unknown]
  - Carbohydrate antigen 125 increased [Unknown]
